FAERS Safety Report 15084912 (Version 2)
Quarter: 2018Q3

REPORT INFORMATION
  Report Type: Spontaneous
  Country: FR (occurrence: FR)
  Receive Date: 20180628
  Receipt Date: 20180726
  Transmission Date: 20181010
  Serious: Yes (Hospitalization, Other)
  Sender: FDA-Public Use
  Company Number: PHHY2018FR029188

PATIENT
  Age: 56 Year
  Sex: Female
  Weight: 60 kg

DRUGS (1)
  1. GLIVEC [Suspect]
     Active Substance: IMATINIB MESYLATE
     Indication: GASTROINTESTINAL STROMAL TUMOUR
     Dosage: 400 OT, UNK
     Route: 048
     Dates: start: 20170913

REACTIONS (4)
  - Acute coronary syndrome [Recovered/Resolved]
  - Stress cardiomyopathy [Recovered/Resolved]
  - Troponin increased [Recovered/Resolved]
  - Ventricular hypokinesia [Unknown]

NARRATIVE: CASE EVENT DATE: 20180601
